FAERS Safety Report 7431682-8 (Version None)
Quarter: 2011Q2

REPORT INFORMATION
  Report Type: 
  Country: None (occurrence: None)
  Receive Date: 20110422
  Receipt Date: 20110420
  Transmission Date: 20111010
  Serious: Yes (Life-Threatening, Hospitalization)
  Sender: FDA-Public Use
  Company Number: CH-SP-2011-00490

PATIENT
  Sex: Male

DRUGS (4)
  1. IMMUCYST [Suspect]
     Indication: NEOPLASM MALIGNANT
     Dosage: NOT REPORTED
     Route: 043
     Dates: start: 20100226, end: 20101201
  2. TILIDINE [Concomitant]
     Dosage: 4X20 DROPS/DAY
  3. PANTOPRAZOLE [Concomitant]
  4. BROMAZEPAM [Concomitant]

REACTIONS (17)
  - LUNG DISORDER [None]
  - PYREXIA [None]
  - HYPOTENSION [None]
  - BOVINE TUBERCULOSIS [None]
  - OEDEMA PERIPHERAL [None]
  - TACHYPNOEA [None]
  - DIARRHOEA [None]
  - DEEP VEIN THROMBOSIS [None]
  - DECREASED APPETITE [None]
  - GRANULOMATOUS LIVER DISEASE [None]
  - DISSEMINATED INTRAVASCULAR COAGULATION [None]
  - VOMITING [None]
  - CHILLS [None]
  - TACHYCARDIA [None]
  - NAUSEA [None]
  - PULMONARY EMBOLISM [None]
  - JAUNDICE [None]
